FAERS Safety Report 9007203 (Version 1)
Quarter: 2013Q1

REPORT INFORMATION
  Report Type: Report from Study
  Country: US (occurrence: US)
  Receive Date: 20130110
  Receipt Date: 20130110
  Transmission Date: 20140127
  Serious: Yes (Hospitalization)
  Sender: FDA-Public Use
  Company Number: US-ROCHE-1178216

PATIENT
  Age: 46 Year
  Sex: Female
  Weight: 47.2 kg

DRUGS (4)
  1. BEVACIZUMAB [Suspect]
     Indication: BREAST CANCER
     Dosage: OVER 30-90 MIN ON DAY 1 OF WKS 1, 3, 5, 7, 9, 11, 13, 15 AND 17
     Route: 065
     Dates: start: 20120813
  2. CYCLOPHOSPHAMIDE [Suspect]
     Indication: BREAST CANCER
     Dosage: OVER 5-30 MIN ON DAY 1 OF WKS 13, 15, 17 AND 19
     Route: 042
     Dates: start: 20120813
  3. DOXORUBICIN HYDROCHLORIDE [Suspect]
     Indication: BREAST CANCER
     Dosage: OVER 5-10 MIN ON DAY 1 OF WKS 13, 15, 17 AND 19
     Route: 042
     Dates: start: 20120813
  4. NEULASTA [Concomitant]
     Dosage: ON DAY 2
     Route: 065
     Dates: start: 20121113

REACTIONS (2)
  - Pain [Recovered/Resolved]
  - Chills [Recovered/Resolved]
